FAERS Safety Report 10088877 (Version 6)
Quarter: 2015Q1

REPORT INFORMATION
  Report Type: Report from Study
  Country: FR (occurrence: FR)
  Receive Date: 20140421
  Receipt Date: 20150209
  Transmission Date: 20150720
  Serious: Yes (Life-Threatening, Other)
  Sender: FDA-Public Use
  Company Number: PHHO2014FR005738

PATIENT
  Age: 13 Year
  Sex: Female
  Weight: 50.6 kg

DRUGS (2)
  1. ACZ885 [Suspect]
     Active Substance: CANAKINUMAB
     Indication: JUVENILE IDIOPATHIC ARTHRITIS
     Dosage: 4 MG/KG, EVERY 4 WEEK
     Route: 058
     Dates: start: 20130828, end: 20140310
  2. ACZ885 [Suspect]
     Active Substance: CANAKINUMAB
     Dosage: 2 MG/KG, EVERY 4 WEEK
     Route: 058
     Dates: start: 20140311, end: 20140505

REACTIONS (3)
  - Proctitis infectious [Not Recovered/Not Resolved]
  - Infectious colitis [Not Recovered/Not Resolved]
  - Colitis ulcerative [Recovered/Resolved]

NARRATIVE: CASE EVENT DATE: 20140415
